FAERS Safety Report 25870935 (Version 2)
Quarter: 2025Q4

REPORT INFORMATION
  Report Type: Spontaneous
  Country: CA (occurrence: CA)
  Receive Date: 20251001
  Receipt Date: 20251007
  Transmission Date: 20260117
  Serious: Yes (Other)
  Sender: CIPHER
  Company Number: CA-CIPHER-2025-CA-000702

PATIENT
  Age: 53 Year
  Sex: Male

DRUGS (49)
  1. TRAMADOL HYDROCHLORIDE [Suspect]
     Active Substance: TRAMADOL HYDROCHLORIDE
     Indication: Migraine
  2. AMITRIPTYLINE HYDROCHLORIDE [Suspect]
     Active Substance: AMITRIPTYLINE HYDROCHLORIDE
     Indication: Product used for unknown indication
  3. BOTOX [Suspect]
     Active Substance: ONABOTULINUMTOXINA
     Indication: Product used for unknown indication
  4. BOTULINUM TOXIN TYPE A [Suspect]
     Active Substance: BOTULINUM TOXIN TYPE A
     Indication: Product used for unknown indication
  5. CELEBREX [Suspect]
     Active Substance: CELECOXIB
     Indication: Product used for unknown indication
  6. CHLORPHENIRAMINE MALEATE [Suspect]
     Active Substance: CHLORPHENIRAMINE MALEATE
     Indication: Product used for unknown indication
  7. CODEINE [Suspect]
     Active Substance: CODEINE
     Indication: Migraine
  8. DEMEROL [Suspect]
     Active Substance: MEPERIDINE HYDROCHLORIDE
     Indication: Migraine
  9. DICLOFENAC [Suspect]
     Active Substance: DICLOFENAC
     Indication: Migraine
  10. DICLOFENAC SODIUM [Suspect]
     Active Substance: DICLOFENAC SODIUM
     Indication: Migraine
  11. DIHYDROERGOTAMINE MESYLATE [Suspect]
     Active Substance: DIHYDROERGOTAMINE MESYLATE
     Indication: Migraine
  12. ACETAMINOPHEN [Suspect]
     Active Substance: ACETAMINOPHEN
     Indication: Migraine
  13. DULOXETINE HYDROCHLORIDE [Suspect]
     Active Substance: DULOXETINE HYDROCHLORIDE
     Indication: Migraine
  14. ENDOCET [Suspect]
     Active Substance: ACETAMINOPHEN\OXYCODONE HYDROCHLORIDE
     Indication: Migraine
     Route: 048
  15. ESOMEPRAZOLE [Suspect]
     Active Substance: ESOMEPRAZOLE
     Indication: Product used for unknown indication
     Route: 048
  16. ESOMEPRAZOLE MAGNESIUM [Suspect]
     Active Substance: ESOMEPRAZOLE MAGNESIUM
     Indication: Product used for unknown indication
     Route: 048
  17. ESOMEPRAZOLE MAGNESIUM\NAPROXEN [Suspect]
     Active Substance: ESOMEPRAZOLE MAGNESIUM\NAPROXEN
     Indication: Product used for unknown indication
  18. GABAPENTIN [Suspect]
     Active Substance: GABAPENTIN
     Indication: Product used for unknown indication
  19. HYDROMORPHONE [Suspect]
     Active Substance: HYDROMORPHONE
     Indication: Migraine
  20. HYDROMORPHONE HYDROCHLORIDE [Suspect]
     Active Substance: HYDROMORPHONE HYDROCHLORIDE
     Indication: Migraine
  21. IBUPROFEN [Suspect]
     Active Substance: IBUPROFEN
     Indication: Product used for unknown indication
  22. KETAMINE HYDROCHLORIDE [Suspect]
     Active Substance: KETAMINE HYDROCHLORIDE
     Indication: Migraine
  23. ACETAMINOPHEN\CAFFEINE\CHLORPHENIRAMINE\PHENYLPROPANOLAMINE [Suspect]
     Active Substance: ACETAMINOPHEN\CAFFEINE\CHLORPHENIRAMINE\PHENYLPROPANOLAMINE
     Indication: Migraine
  24. KETOROLAC [Suspect]
     Active Substance: KETOROLAC TROMETHAMINE
     Indication: Product used for unknown indication
  25. MAXALT [Suspect]
     Active Substance: RIZATRIPTAN BENZOATE
     Indication: Migraine
  26. MORPHINE SULFATE [Suspect]
     Active Substance: MORPHINE SULFATE
     Indication: Migraine
  27. NORTRIPTYLINE [Suspect]
     Active Substance: NORTRIPTYLINE
     Indication: Product used for unknown indication
  28. NORTRIPTYLINE HYDROCHLORIDE [Suspect]
     Active Substance: NORTRIPTYLINE HYDROCHLORIDE
     Indication: Product used for unknown indication
  29. ONDANSETRON [Suspect]
     Active Substance: ONDANSETRON
     Indication: Product used for unknown indication
  30. ONDANSETRON HYDROCHLORIDE [Suspect]
     Active Substance: ONDANSETRON HYDROCHLORIDE
     Indication: Product used for unknown indication
  31. PROPRANOLOL [Suspect]
     Active Substance: PROPRANOLOL HYDROCHLORIDE
     Indication: Migraine
  32. PROPRANOLOL HYDROCHLORIDE [Suspect]
     Active Substance: PROPRANOLOL HYDROCHLORIDE
     Indication: Product used for unknown indication
  33. TENORETIC [Suspect]
     Active Substance: ATENOLOL\CHLORTHALIDONE
     Indication: Product used for unknown indication
  34. ACETAMINOPHEN\CODEINE PHOSPHATE [Suspect]
     Active Substance: ACETAMINOPHEN\CODEINE PHOSPHATE
     Indication: Migraine
  35. DULOXETINE [Suspect]
     Active Substance: DULOXETINE
     Indication: Migraine
  36. TOPAMAX [Suspect]
     Active Substance: TOPIRAMATE
     Indication: Product used for unknown indication
  37. TOPIRAMATE [Suspect]
     Active Substance: TOPIRAMATE
     Indication: Product used for unknown indication
  38. TORADOL [Suspect]
     Active Substance: KETOROLAC TROMETHAMINE
     Indication: Product used for unknown indication
  39. TRIACETIN [Suspect]
     Active Substance: TRIACETIN
     Indication: Migraine
  40. TYLENOL [Suspect]
     Active Substance: ACETAMINOPHEN
     Indication: Migraine
  41. VENLAFAXINE [Suspect]
     Active Substance: VENLAFAXINE HYDROCHLORIDE
     Indication: Migraine
  42. VENLAFAXINE HYDROCHLORIDE [Suspect]
     Active Substance: VENLAFAXINE HYDROCHLORIDE
     Indication: Migraine
  43. DICLOFENAC DIETHYLAMINE [Suspect]
     Active Substance: DICLOFENAC DIETHYLAMINE
     Indication: Product used for unknown indication
  44. ZOFRAN [Suspect]
     Active Substance: ONDANSETRON HYDROCHLORIDE
     Indication: Migraine
  45. ACETAMINOPHEN\OXYCODONE HYDROCHLORIDE [Suspect]
     Active Substance: ACETAMINOPHEN\OXYCODONE HYDROCHLORIDE
     Indication: Migraine
  46. ACETAMINOPHEN\TRAMADOL HYDROCHLORIDE [Suspect]
     Active Substance: ACETAMINOPHEN\TRAMADOL HYDROCHLORIDE
     Indication: Migraine
  47. ACETAMINOPHEN [Suspect]
     Active Substance: ACETAMINOPHEN
     Indication: Migraine
  48. ALMOTRIPTAN MALATE [Suspect]
     Active Substance: ALMOTRIPTAN MALATE
     Indication: Product used for unknown indication
  49. AMITRIPTYLINE [Suspect]
     Active Substance: AMITRIPTYLINE
     Indication: Product used for unknown indication

REACTIONS (9)
  - Sedation [Unknown]
  - Drug ineffective [Unknown]
  - Hyperhidrosis [Unknown]
  - Nausea [Unknown]
  - Nephrolithiasis [Unknown]
  - Nightmare [Unknown]
  - Off label use [Unknown]
  - Product use in unapproved indication [Unknown]
  - Product used for unknown indication [Unknown]
